FAERS Safety Report 5660318-1 (Version None)
Quarter: 2008Q1

REPORT INFORMATION
  Report Type: 
  Country: None (occurrence: None)
  Receive Date: 20080306
  Receipt Date: 20080219
  Transmission Date: 20080703
  Serious: Yes (Disabling)
  Sender: FDA-Public Use
  Company Number: 000161

PATIENT
  Age: 74 Year
  Sex: Female

DRUGS (4)
  1. PLETAL [Suspect]
     Indication: ANTICOAGULANT THERAPY
     Dosage: 100 MG, BID ORAL
     Route: 048
     Dates: start: 20070118, end: 20070206
  2. ACETYLSALICYLIC ACID SRT [Concomitant]
  3. SIMVASTATIN [Concomitant]
  4. TRAMADOL HCL [Concomitant]

REACTIONS (10)
  - DIARRHOEA [None]
  - DIZZINESS [None]
  - HEADACHE [None]
  - MALAISE [None]
  - NAUSEA [None]
  - OEDEMA DUE TO CARDIAC DISEASE [None]
  - OEDEMA PERIPHERAL [None]
  - PULMONARY OEDEMA [None]
  - SYNCOPE [None]
  - VOMITING [None]
